FAERS Safety Report 9057572 (Version 1)
Quarter: 2013Q1

REPORT INFORMATION
  Report Type: Spontaneous
  Country: US (occurrence: None)
  Receive Date: 20130204
  Receipt Date: 20130204
  Transmission Date: 20140127
  Serious: Yes (Hospitalization)
  Sender: FDA-Public Use
  Company Number: None

PATIENT
  Age: 71 Year
  Sex: Male
  Weight: 72.5 kg

DRUGS (8)
  1. ASA [Suspect]
     Route: 048
  2. ZOCOR [Concomitant]
  3. QUINAPRIL [Concomitant]
  4. METFORMIN [Concomitant]
  5. NAMENDA [Concomitant]
  6. HCTZ [Concomitant]
  7. ARICEPT [Concomitant]
  8. NEXIUM [Concomitant]

REACTIONS (2)
  - Oesophagitis [None]
  - Upper gastrointestinal haemorrhage [None]
